FAERS Safety Report 13535342 (Version 1)
Quarter: 2017Q2

REPORT INFORMATION
  Report Type: Spontaneous
  Country: FR (occurrence: FR)
  Receive Date: 20170511
  Receipt Date: 20170511
  Transmission Date: 20170830
  Serious: Yes (Hospitalization)
  Sender: FDA-Public Use
  Company Number: FR-PFIZER INC-2017197876

PATIENT
  Age: 91 Year
  Sex: Male

DRUGS (6)
  1. CHOLECALCIFEROL [Concomitant]
     Active Substance: CHOLECALCIFEROL
     Dosage: (100 000 IU/2 ML) ONCE EVERY 2 MONTHS
  2. PARACETAMOL [Concomitant]
     Active Substance: ACETAMINOPHEN
     Dosage: 1000 MG, 3X/DAY IN THE MORNING, AT NOON, AND IN THE EVENING
  3. SILODOSINE [Concomitant]
     Active Substance: SILODOSIN
     Dosage: 8 MG, 1X/DAY IN THE EVENING
  4. VASELINE /00473501/ [Concomitant]
     Dosage: 1 APPLICATION, 1X/DAY
  5. LANSOPRAZOLE. [Concomitant]
     Active Substance: LANSOPRAZOLE
     Dosage: 15 MG, 1X/DAY IN THE EVENING
  6. LYRICA [Suspect]
     Active Substance: PREGABALIN
     Indication: NEURALGIA
     Dosage: 100 MG, DAILY (25 MG, ONE IN THE MORNING, ONE AT NOON AND TWO IN THE EVENING)
     Route: 048
     Dates: end: 20170227

REACTIONS (1)
  - Hepatic enzyme increased [Recovering/Resolving]

NARRATIVE: CASE EVENT DATE: 20170221
